FAERS Safety Report 23221033 (Version 1)
Quarter: 2023Q4

REPORT INFORMATION
  Report Type: Spontaneous
  Country: ES (occurrence: ES)
  Receive Date: 20231123
  Receipt Date: 20231123
  Transmission Date: 20240109
  Serious: Yes (Hospitalization, Other)
  Sender: FDA-Public Use
  Company Number: ES-PFIZER INC-PV202300182464

PATIENT
  Age: 81 Year
  Sex: Female
  Weight: 52 kg

DRUGS (10)
  1. LETROZOLE [Suspect]
     Active Substance: LETROZOLE
     Indication: Breast cancer metastatic
     Dosage: 2.5 MILLIGRAM, ONCE A DAY
     Route: 065
     Dates: start: 20230713
  2. PALBOCICLIB [Suspect]
     Active Substance: PALBOCICLIB
     Indication: Breast cancer metastatic
     Dosage: 75 MILLIGRAM, ONCE A DAY (75 MG, 1X/DAY; 3 WEEKS ON/1 WEEK OFF OFF FROM CYCLE 4)
     Route: 065
  3. PALBOCICLIB [Suspect]
     Active Substance: PALBOCICLIB
     Dosage: 75 MILLIGRAM, ONCE A DAY (75 MG, 1X/DAY; 3 WEEKS ON/2 WEEK OFF OFF FROM CYCLE 10)
     Route: 065
  4. PALBOCICLIB [Suspect]
     Active Substance: PALBOCICLIB
     Dosage: 100 MILLIGRAM, ONCE A DAY (100 MG, 1X/DAY; 3 WEEKS ON/1 WEEK OFF)
     Route: 065
     Dates: start: 20230713
  5. PALBOCICLIB [Suspect]
     Active Substance: PALBOCICLIB
     Dosage: 100 MILLIGRAM, ONCE A DAY (100 MG, 1X/DAY; 3 WEEKS ON/1 WEEK OFF)
     Route: 065
     Dates: start: 20230830
  6. CODEINE PHOSPHATE [Concomitant]
     Active Substance: CODEINE PHOSPHATE
     Indication: Product used for unknown indication
     Dosage: 3 DOSAGE FORM, ONCE A DAY (1 DF, 3X/DAY, 1 TABLET EVERY 8 HOURS)
     Route: 065
  7. ONDANSETRON [Concomitant]
     Active Substance: ONDANSETRON
     Indication: Product used for unknown indication
     Dosage: 12 MILLIGRAM, ONCE A DAY (4 MG, 3X/DAY, 4 MG EVERY 8 HOURS IF NEEDED)
     Route: 065
  8. OMEPRAZOLE [Concomitant]
     Active Substance: OMEPRAZOLE
     Indication: Product used for unknown indication
     Dosage: 20 MILLIGRAM, ONCE A DAY (20 MG, 1X/DAY, EVERY 24 HOURS)
     Route: 065
  9. AMLODIPINE [Concomitant]
     Active Substance: AMLODIPINE BESYLATE
     Indication: Product used for unknown indication
     Dosage: 5 MILLIGRAM, ONCE A DAY
     Route: 065
  10. METOCLOPRAMIDE [Concomitant]
     Active Substance: METOCLOPRAMIDE
     Indication: Product used for unknown indication
     Dosage: 30 MILLIGRAM, ONCE A DAY (10 MG, 3X/DAY, 10 MG EVERY 8 HOURS IF NEEDED)
     Route: 065

REACTIONS (7)
  - Pyelonephritis acute [Recovered/Resolved]
  - Neutropenia [Unknown]
  - Dry skin [Unknown]
  - Arthralgia [Unknown]
  - Alopecia [Unknown]
  - Asthenia [Unknown]
  - Mucosal dryness [Unknown]
